FAERS Safety Report 8202659 (Version 3)
Quarter: 2012Q4

REPORT INFORMATION
  Report Type: 
  Country: AU (occurrence: AU)
  Receive Date: 20111027
  Receipt Date: 20120914
  Transmission Date: 20130627
  Serious: Yes (Other)
  Sender: FDA-Public Use
  Company Number: PHHY2011AU92847

PATIENT
  Age: 82 Year
  Sex: Female

DRUGS (10)
  1. ACLASTA [Suspect]
     Indication: OSTEOPOROSIS
     Dosage: 5 mg
     Route: 042
     Dates: start: 20111019
  2. ALDACTONE [Concomitant]
     Dosage: 25 mg, UNK
  3. AMITRIPTYLINE [Concomitant]
     Dosage: 50 mg, UNK
  4. CADUET [Concomitant]
     Dosage: 5 mg/ 20 mg
  5. CARTIA [Concomitant]
  6. CELEBREX [Concomitant]
     Dosage: 20 mg, UNK
  7. MICARDIS [Concomitant]
  8. PANADOL [Concomitant]
  9. SERETIDE [Concomitant]
  10. SPIRIVA [Concomitant]

REACTIONS (8)
  - Asthma [Recovering/Resolving]
  - Chest discomfort [Recovering/Resolving]
  - Feeling hot [Recovered/Resolved]
  - Dry skin [Recovering/Resolving]
  - Hypoaesthesia oral [Unknown]
  - Pruritus [Unknown]
  - Hypersensitivity [Unknown]
  - Drug hypersensitivity [None]
